FAERS Safety Report 8589353-0 (Version None)
Quarter: 2012Q3

REPORT INFORMATION
  Report Type: 
  Country: None (occurrence: None)
  Receive Date: 20120813
  Receipt Date: 20120731
  Transmission Date: 20120928
  Serious: Yes (Hospitalization)
  Sender: FDA-Public Use
  Company Number: FR-BAXTER-2012BAX013225

PATIENT
  Sex: Female

DRUGS (16)
  1. ZOVIRAX [Concomitant]
  2. THYMOGLOBULIN [Concomitant]
     Indication: IMMUNOSUPPRESSANT DRUG THERAPY
     Dosage: 3.5MG/KG/DAY
     Dates: start: 20100811
  3. SOLU-MEDROL [Suspect]
     Indication: PROPHYLAXIS AGAINST GRAFT VERSUS HOST DISEASE
     Route: 065
     Dates: start: 20101112, end: 20101116
  4. COLIMYCINE [Concomitant]
     Indication: PROPHYLAXIS
     Route: 065
     Dates: start: 20100719
  5. POLARAMINE [Concomitant]
     Route: 065
     Dates: start: 20100801
  6. CYCLOSPORINE [Concomitant]
     Indication: IMMUNOSUPPRESSANT DRUG THERAPY
     Route: 048
     Dates: start: 20100811
  7. THYMOGLOBULIN [Suspect]
     Indication: PROPHYLAXIS AGAINST GRAFT VERSUS HOST DISEASE
     Dosage: 2 MG/M2
     Route: 042
     Dates: start: 20101112, end: 20101116
  8. NOXAFIL [Concomitant]
     Indication: PROPHYLAXIS
     Route: 065
     Dates: start: 20100719
  9. VANCOMYCIN [Concomitant]
     Indication: PROPHYLAXIS
     Route: 065
     Dates: start: 20100902, end: 20100913
  10. IMIPENEM AND CILASTATIN SODIUM [Concomitant]
     Route: 065
     Dates: end: 20100913
  11. TAZOBACTAM [Concomitant]
     Route: 042
     Dates: start: 20100720
  12. ZOVIRAX [Concomitant]
     Route: 065
     Dates: start: 20100731, end: 20100901
  13. PREDNISONE TAB [Concomitant]
     Indication: IMMUNOSUPPRESSANT DRUG THERAPY
     Route: 065
     Dates: start: 20100811
  14. CYCLOPHOSPHAMIDE [Suspect]
     Indication: PROPHYLAXIS AGAINST GRAFT VERSUS HOST DISEASE
     Dosage: 50 MG/M2
     Route: 042
     Dates: start: 20101110, end: 20101114
  15. TAZOBACTAM [Concomitant]
     Route: 065
     Dates: start: 20100919
  16. SOLU-MEDROL [Concomitant]
     Indication: IMMUNOSUPPRESSANT DRUG THERAPY
     Dosage: 2 MG/KG/DAY
     Dates: start: 20100811

REACTIONS (1)
  - ACUTE PULMONARY OEDEMA [None]
